FAERS Safety Report 20587335 (Version 2)
Quarter: 2022Q1

REPORT INFORMATION
  Report Type: Spontaneous
  Country: US (occurrence: US)
  Receive Date: 20220314
  Receipt Date: 20220328
  Transmission Date: 20220424
  Serious: No
  Sender: FDA-Public Use
  Company Number: US-AMGEN-USASP2022043716

PATIENT
  Age: 54 Year
  Sex: Female

DRUGS (1)
  1. AIMOVIG [Suspect]
     Active Substance: ERENUMAB-AOOE
     Indication: Migraine
     Dosage: 140 MILLIGRAM, QMO
     Route: 065
     Dates: start: 2021

REACTIONS (3)
  - Malaise [Unknown]
  - Device difficult to use [Unknown]
  - Wrong technique in product usage process [Unknown]

NARRATIVE: CASE EVENT DATE: 20220301
